FAERS Safety Report 24085957 (Version 1)
Quarter: 2024Q3

REPORT INFORMATION
  Report Type: Spontaneous
  Country: FR (occurrence: None)
  Receive Date: 20240712
  Receipt Date: 20240712
  Transmission Date: 20241017
  Serious: Yes (Hospitalization)
  Sender: ASTRAZENECA
  Company Number: 2024A154473

PATIENT
  Age: 57 Year
  Sex: Female
  Weight: 50.8 kg

DRUGS (5)
  1. LYNPARZA [Suspect]
     Active Substance: OLAPARIB
     Indication: Ovarian cancer
     Route: 048
     Dates: end: 20240612
  2. ACYCLOVIR [Concomitant]
     Active Substance: ACYCLOVIR
  3. FLUCONAZOLE [Concomitant]
     Active Substance: FLUCONAZOLE
  4. ACETAMINOPHEN [Concomitant]
     Active Substance: ACETAMINOPHEN
  5. PANTOPRAZOLE [Concomitant]
     Active Substance: PANTOPRAZOLE

REACTIONS (1)
  - Oesophagitis [Recovering/Resolving]

NARRATIVE: CASE EVENT DATE: 20240605
